FAERS Safety Report 9285685 (Version 1)
Quarter: 2013Q2

REPORT INFORMATION
  Report Type: Spontaneous
  Country: US (occurrence: US)
  Receive Date: 20130513
  Receipt Date: 20130513
  Transmission Date: 20140414
  Serious: Yes (Other)
  Sender: FDA-Public Use
  Company Number: US-PFIZER INC-2013145394

PATIENT
  Age: 62 Year
  Sex: Female
  Weight: 78.01 kg

DRUGS (3)
  1. CELEBREX [Suspect]
     Dosage: 200 MG, 2X/DAY
  2. LYRICA [Suspect]
     Indication: POSTOPERATIVE CARE
     Dosage: 50 MG, 1X/DAY
     Dates: start: 2009, end: 2009
  3. METOPROLOL [Concomitant]
     Indication: HYPERTENSION
     Dosage: 100 MG, 2X/DAY

REACTIONS (3)
  - Back disorder [Unknown]
  - Drug intolerance [Recovered/Resolved]
  - Somnolence [Recovered/Resolved]
